FAERS Safety Report 6801280-5 (Version None)
Quarter: 2010Q2

REPORT INFORMATION
  Report Type: 
  Country: None (occurrence: None)
  Receive Date: 20100629
  Receipt Date: 20100511
  Transmission Date: 20101027
  Serious: Yes (Other)
  Sender: FDA-Public Use
  Company Number: A0859387A

PATIENT
  Sex: Male

DRUGS (2)
  1. LAMICTAL [Suspect]
     Indication: EPILEPSY
     Route: 048
  2. UNKNOWN MEDICATION [Concomitant]

REACTIONS (2)
  - RASH GENERALISED [None]
  - STEVENS-JOHNSON SYNDROME [None]
